FAERS Safety Report 13412313 (Version 2)
Quarter: 2017Q4

REPORT INFORMATION
  Report Type: Spontaneous
  Country: US (occurrence: US)
  Receive Date: 20170406
  Receipt Date: 20171123
  Transmission Date: 20180320
  Serious: No
  Sender: FDA-Public Use
  Company Number: US-JNJFOC-20170308394

PATIENT
  Sex: Male

DRUGS (3)
  1. RISPERDAL [Suspect]
     Active Substance: RISPERIDONE
     Indication: BIPOLAR DISORDER
     Dosage: VARYING DOSAGE OF 2MG AND 3 MG EVERY NIGHT TIME
     Route: 048
     Dates: start: 20101005, end: 20120307
  2. INVEGA [Suspect]
     Active Substance: PALIPERIDONE
     Indication: BIPOLAR DISORDER
     Route: 048
     Dates: start: 20101005, end: 20101110
  3. RISPERIDONE. [Suspect]
     Active Substance: RISPERIDONE
     Indication: BIPOLAR DISORDER
     Dosage: VARYING DOSAGE OF 2MG AND 3 MG
     Route: 048
     Dates: start: 20101005, end: 20120307

REACTIONS (2)
  - Gynaecomastia [Unknown]
  - Emotional disorder [Unknown]
